FAERS Safety Report 24783214 (Version 1)
Quarter: 2024Q4

REPORT INFORMATION
  Report Type: Spontaneous
  Country: US (occurrence: US)
  Receive Date: 20241227
  Receipt Date: 20241227
  Transmission Date: 20250114
  Serious: Yes (Hospitalization, Other)
  Sender: NOVO NORDISK
  Company Number: US-NOVOPROD-1341392

PATIENT
  Age: 39 Year
  Sex: Female

DRUGS (4)
  1. OZEMPIC [Suspect]
     Active Substance: SEMAGLUTIDE
     Indication: Weight control
     Dosage: 12 MG (OVERDOSE)
     Route: 058
  2. LURASIDONE [Concomitant]
     Active Substance: LURASIDONE
     Indication: Mental disorder
     Dosage: 80 MG, QD
     Route: 048
  3. PAROXETINE [Concomitant]
     Active Substance: PAROXETINE
     Indication: Mental disorder
     Dosage: 40 MG, QD
     Route: 048
  4. CANNABIS SATIVA SUBSP. INDICA TOP [Concomitant]
     Active Substance: CANNABIS SATIVA SUBSP. INDICA TOP
     Indication: Injury
     Dosage: UNK
     Route: 048

REACTIONS (7)
  - Suicide attempt [Recovering/Resolving]
  - Intentional overdose [Unknown]
  - White blood cell count increased [Unknown]
  - Fatigue [Unknown]
  - Nausea [Unknown]
  - Dizziness [Unknown]
  - Product use in unapproved indication [Unknown]
